FAERS Safety Report 6261404-8 (Version None)
Quarter: 2009Q3

REPORT INFORMATION
  Report Type: 
  Country: None (occurrence: None)
  Receive Date: 20090709
  Receipt Date: 20090608
  Transmission Date: 20100115
  Serious: No
  Sender: FDA-Public Use
  Company Number: US-BAYER-200922971NA

PATIENT
  Age: 40 Year
  Sex: Female

DRUGS (1)
  1. AVELOX [Suspect]
     Indication: URINARY TRACT INFECTION

REACTIONS (2)
  - GENERALISED ERYTHEMA [None]
  - PRURITUS [None]
